FAERS Safety Report 6339896-5 (Version None)
Quarter: 2009Q3

REPORT INFORMATION
  Report Type: 
  Country: None (occurrence: None)
  Receive Date: 20090903
  Receipt Date: 20090901
  Transmission Date: 20100115
  Serious: Yes (Disabling)
  Sender: FDA-Public Use
  Company Number: JP-B.I. PHARMACEUTICALS,INC./RIDGEFIELD-2009-BP-10194NB

PATIENT
  Sex: Female

DRUGS (3)
  1. MICARDIS [Suspect]
     Indication: HYPERTENSION
     Dosage: 40 MG
     Route: 048
     Dates: start: 20071001
  2. CEPHADOL [Concomitant]
     Indication: DIZZINESS
     Dosage: 25 MG
     Route: 048
     Dates: start: 20080801
  3. METHYCOBAL [Concomitant]
     Indication: HYPOAESTHESIA
     Dosage: 1000 MG
     Route: 048
     Dates: start: 20081201, end: 20090715

REACTIONS (2)
  - DIZZINESS [None]
  - HYPOAESTHESIA [None]
